FAERS Safety Report 6050421-9 (Version None)
Quarter: 2009Q1

REPORT INFORMATION
  Report Type: 
  Country: None (occurrence: None)
  Receive Date: 20090121
  Receipt Date: 20081022
  Transmission Date: 20090719
  Serious: No
  Sender: FDA-Public Use
  Company Number: 20096090

PATIENT
  Age: 20 Year

DRUGS (1)
  1. LIORESAL [Suspect]
     Indication: MUSCLE SPASTICITY
     Dosage: DAILY, INTRATHECAL
     Route: 037

REACTIONS (2)
  - CATHETER RELATED INFECTION [None]
  - PURULENCE [None]
